FAERS Safety Report 4781794-2 (Version None)
Quarter: 2005Q3

REPORT INFORMATION
  Report Type: 
  Country: None (occurrence: None)
  Receive Date: 20050914
  Receipt Date: 20050418
  Transmission Date: 20060218
  Serious: Yes (Death)
  Sender: FDA-Public Use
  Company Number: 163-20785-05040368

PATIENT
  Age: 77 Year
  Sex: Male

DRUGS (1)
  1. THALOMID [Suspect]
     Indication: PROSTATE CANCER
     Dosage: 100 MG, DAILY, ORAL
     Route: 048
     Dates: start: 20050226, end: 20050416

REACTIONS (2)
  - DISEASE PROGRESSION [None]
  - METASTASIS [None]
